FAERS Safety Report 25527905 (Version 1)
Quarter: 2025Q3

REPORT INFORMATION
  Report Type: Spontaneous
  Country: EU (occurrence: EU)
  Receive Date: 20250708
  Receipt Date: 20250708
  Transmission Date: 20251021
  Serious: Yes (Other)
  Sender: ACCORD
  Company Number: None

PATIENT
  Age: 64 Year
  Sex: Female

DRUGS (8)
  1. CAPECITABINE [Suspect]
     Active Substance: CAPECITABINE
     Indication: Adenocarcinoma of colon
     Dates: start: 20250515
  2. OXALIPLATIN [Suspect]
     Active Substance: OXALIPLATIN
     Indication: Adenocarcinoma of colon
     Dates: start: 20250515
  3. BEVACIZUMAB [Suspect]
     Active Substance: BEVACIZUMAB
     Indication: Adenocarcinoma of colon
     Dates: start: 20250515
  4. OMEPRAZOLE [Concomitant]
     Active Substance: OMEPRAZOLE
     Dates: start: 20240911
  5. CALCIUM CARBONATE\CHOLECALCIFEROL [Concomitant]
     Active Substance: CALCIUM CARBONATE\CHOLECALCIFEROL
     Dates: start: 20120502
  6. HYDROCHLOROTHIAZIDE [Concomitant]
     Active Substance: HYDROCHLOROTHIAZIDE
     Dosage: HALF A 50 MG TABLET EVERY 24 HOURS
     Dates: start: 20120502
  7. LYRICA [Concomitant]
     Active Substance: PREGABALIN
     Dates: start: 20151009
  8. CYMBALTA [Concomitant]
     Active Substance: DULOXETINE HYDROCHLORIDE
     Dates: start: 20220218

REACTIONS (1)
  - Anaphylactic reaction [Recovered/Resolved]

NARRATIVE: CASE EVENT DATE: 20250515
